FAERS Safety Report 6585867-3 (Version None)
Quarter: 2010Q1

REPORT INFORMATION
  Report Type: 
  Country: None (occurrence: None)
  Receive Date: 20100217
  Receipt Date: 20100212
  Transmission Date: 20100710
  Serious: Yes (Death)
  Sender: FDA-Public Use
  Company Number: US-ELI_LILLY_AND_COMPANY-US200912002809

PATIENT
  Sex: Male

DRUGS (1)
  1. GEMZAR [Suspect]

REACTIONS (2)
  - DEATH [None]
  - HOSPICE CARE [None]
